FAERS Safety Report 19856775 (Version 1)
Quarter: 2021Q3

REPORT INFORMATION
  Report Type: Spontaneous
  Country: CN (occurrence: CN)
  Receive Date: 20210920
  Receipt Date: 20210920
  Transmission Date: 20211014
  Serious: Yes (Hospitalization)
  Sender: FDA-Public Use
  Company Number: CN-OXFORD PHARMACEUTICALS, LLC-2118570

PATIENT
  Age: 63 Year
  Sex: Female
  Weight: 61 kg

DRUGS (3)
  1. SIMVASTATIN. [Suspect]
     Active Substance: SIMVASTATIN
     Indication: HYPERLIPIDAEMIA
  2. GEFITINIB. [Suspect]
     Active Substance: GEFITINIB
  3. NIFEDIPINE. [Suspect]
     Active Substance: NIFEDIPINE

REACTIONS (5)
  - Pustule [Recovering/Resolving]
  - Therapy partial responder [Recovering/Resolving]
  - Drug interaction [Recovering/Resolving]
  - Paronychia [Recovering/Resolving]
  - Treatment noncompliance [Recovering/Resolving]
